FAERS Safety Report 17907781 (Version 1)
Quarter: 2020Q2

REPORT INFORMATION
  Report Type: Report from Study
  Country: IT (occurrence: IT)
  Receive Date: 20200617
  Receipt Date: 20200617
  Transmission Date: 20200714
  Serious: Yes (Other)
  Sender: FDA-Public Use
  Company Number: IT-TEVA-2020-IT-1787944

PATIENT
  Age: 79 Year
  Sex: Male

DRUGS (7)
  1. SOTALOL. [Suspect]
     Active Substance: SOTALOL
     Dosage: 80 MG
     Route: 048
  2. XARELTO [Suspect]
     Active Substance: RIVAROXABAN
     Indication: ATRIAL FIBRILLATION
     Dosage: 20 MG
     Route: 048
     Dates: start: 20191011
  3. SOTALOL. [Concomitant]
     Active Substance: SOTALOL
  4. BROMAZEPAM [Concomitant]
     Active Substance: BROMAZEPAM
  5. ZOLPIDEM TARTRATE. [Concomitant]
     Active Substance: ZOLPIDEM TARTRATE
  6. ENALAPRIL [Concomitant]
     Active Substance: ENALAPRIL
  7. PROPAFENONE. [Suspect]
     Active Substance: PROPAFENONE
     Dosage: 325 MG
     Route: 048

REACTIONS (1)
  - Atrial fibrillation [Recovering/Resolving]

NARRATIVE: CASE EVENT DATE: 20200110
